FAERS Safety Report 13918889 (Version 1)
Quarter: 2017Q3

REPORT INFORMATION
  Report Type: Spontaneous
  Country: IT (occurrence: IT)
  Receive Date: 20170830
  Receipt Date: 20170830
  Transmission Date: 20171127
  Serious: Yes (Death, Life-Threatening, Other)
  Sender: FDA-Public Use
  Company Number: IT-STRIDES ARCOLAB LIMITED-2017SP012088

PATIENT

DRUGS (11)
  1. CICLOSPORIN [Suspect]
     Active Substance: CYCLOSPORINE
     Indication: LUNG TRANSPLANT
     Dosage: UNK
     Route: 065
     Dates: start: 200901
  2. METHYLPREDNISOLONE. [Suspect]
     Active Substance: METHYLPREDNISOLONE
     Dosage: UNK
     Route: 042
     Dates: start: 2009
  3. TACROLIMUS. [Suspect]
     Active Substance: TACROLIMUS
     Indication: LUNG TRANSPLANT
  4. AZATHIOPRINE. [Suspect]
     Active Substance: AZATHIOPRINE
     Indication: LUNG TRANSPLANT
     Dosage: 2 MG/KG/DAY
     Route: 065
     Dates: start: 200901
  5. PREDNISOLONE. [Suspect]
     Active Substance: PREDNISOLONE
     Dosage: UNK, UNKNOWN
     Route: 065
  6. MYCOPHENOLATE MOFETIL. [Suspect]
     Active Substance: MYCOPHENOLATE MOFETIL
     Indication: LUNG TRANSPLANT
  7. TACROLIMUS. [Suspect]
     Active Substance: TACROLIMUS
     Indication: TRANSPLANT REJECTION
     Dosage: UNK
     Route: 065
     Dates: start: 200909
  8. VORICONAZOLE. [Concomitant]
     Active Substance: VORICONAZOLE
     Indication: ASPERGILLUS INFECTION
     Dosage: UNK
     Route: 065
  9. PREDNISOLONE. [Suspect]
     Active Substance: PREDNISOLONE
     Indication: LUNG TRANSPLANT
     Dosage: 25MG/DAY
     Route: 065
     Dates: start: 200901
  10. METHYLPREDNISOLONE. [Suspect]
     Active Substance: METHYLPREDNISOLONE
     Indication: LUNG TRANSPLANT
     Dosage: 10 MG/KG, UNKNOWN
     Route: 042
     Dates: start: 2009
  11. MYCOPHENOLATE MOFETIL. [Suspect]
     Active Substance: MYCOPHENOLATE MOFETIL
     Indication: TRANSPLANT REJECTION
     Dosage: UNK
     Route: 065
     Dates: start: 200909

REACTIONS (4)
  - Weight decreased [Unknown]
  - Respiratory disorder [Unknown]
  - Off label use [Unknown]
  - Kaposi^s sarcoma [Fatal]

NARRATIVE: CASE EVENT DATE: 2010
